FAERS Safety Report 9071665 (Version 1)
Quarter: 2013Q1

REPORT INFORMATION
  Report Type: Spontaneous
  Country: US (occurrence: US)
  Receive Date: 20130206
  Receipt Date: 20130206
  Transmission Date: 20140127
  Serious: No
  Sender: FDA-Public Use
  Company Number: US-ALLERGAN-1213337US

PATIENT
  Sex: Female

DRUGS (9)
  1. RESTASIS? [Suspect]
     Indication: DRY EYE
     Dosage: UNK
     Dates: start: 201204, end: 201206
  2. RESTASIS? [Suspect]
     Dosage: UNK
     Dates: end: 201203
  3. DOXYCYCLINE [Concomitant]
     Indication: ROSACEA
     Dosage: 20 MG, UNK
  4. DOXYCYCLINE [Concomitant]
     Indication: MEIBOMIANITIS
  5. FISH OIL [Concomitant]
     Indication: PRODUCT USED FOR UNKNOWN INDICATION
  6. MULTIVITAMIN                       /00097801/ [Concomitant]
     Indication: PRODUCT USED FOR UNKNOWN INDICATION
  7. PRILOSEC                           /00661201/ [Concomitant]
  8. VITAMIN D /00107901/ [Concomitant]
  9. ARTIFICIAL TEARS                   /90046201/ [Concomitant]

REACTIONS (3)
  - Inappropriate schedule of drug administration [Unknown]
  - Tongue coated [Not Recovered/Not Resolved]
  - Oral candidiasis [Not Recovered/Not Resolved]
